FAERS Safety Report 12653420 (Version 3)
Quarter: 2017Q1

REPORT INFORMATION
  Report Type: Report from Study
  Country: US (occurrence: US)
  Receive Date: 20160815
  Receipt Date: 20170111
  Transmission Date: 20170428
  Serious: Yes (Death, Other)
  Sender: FDA-Public Use
  Company Number: US-ALEXION-A201605826

PATIENT
  Sex: Male

DRUGS (1)
  1. SOLIRIS [Suspect]
     Active Substance: ECULIZUMAB
     Indication: HAEMOLYTIC URAEMIC SYNDROME
     Dosage: UNK
     Route: 042

REACTIONS (7)
  - Weight decreased [Unknown]
  - Amnesia [Unknown]
  - Pollakiuria [Unknown]
  - Fluid overload [Unknown]
  - Dementia [Fatal]
  - Anxiety [Unknown]
  - Dyspnoea [Unknown]
